FAERS Safety Report 23171681 (Version 1)
Quarter: 2023Q4

REPORT INFORMATION
  Report Type: Spontaneous
  Country: US (occurrence: US)
  Receive Date: 20231110
  Receipt Date: 20231110
  Transmission Date: 20240110
  Serious: No
  Sender: FDA-Public Use
  Company Number: US-ABBVIE-5488411

PATIENT
  Sex: Male

DRUGS (1)
  1. KADIAN [Suspect]
     Active Substance: MORPHINE SULFATE
     Indication: Hip arthroplasty
     Dosage: FORM STRENGTH: 100 MILLIGRAM?STARTED AND STOPPED DECADES AGO
     Route: 048

REACTIONS (1)
  - Pruritus [Recovered/Resolved]
